FAERS Safety Report 24714410 (Version 1)
Quarter: 2024Q4

REPORT INFORMATION
  Report Type: Report from Study
  Country: NL (occurrence: NL)
  Receive Date: 20241209
  Receipt Date: 20241209
  Transmission Date: 20250115
  Serious: Yes (Other)
  Sender: ABBVIE
  Company Number: NL-ABBVIE-6032643

PATIENT
  Age: 55 Year
  Sex: Female

DRUGS (6)
  1. CARBIDOPA\LEVODOPA [Suspect]
     Active Substance: CARBIDOPA\LEVODOPA
     Indication: Parkinson^s disease
     Route: 050
  2. CARBIDOPA\LEVODOPA [Suspect]
     Active Substance: CARBIDOPA\LEVODOPA
     Dosage: PUMP TYPE : DAY PUMP, MORNING DOSAGE : 11.0 ML,  CONTINUOUS DOSAGE : 4.8 ML,/HR, EXTRA DOSAGE : 2...
     Route: 050
     Dates: start: 20240724, end: 20240820
  3. CARBIDOPA\LEVODOPA [Suspect]
     Active Substance: CARBIDOPA\LEVODOPA
     Dosage: PUMP TYPE : DAY PUMP, MORNING DOSAGE : 11.0 ML,  CONTINUOUS DOSAGE : 5.1 ML,/HR, EXTRA DOSAGE : 3...
     Route: 050
     Dates: start: 20240820, end: 20240820
  4. CARBIDOPA\LEVODOPA [Suspect]
     Active Substance: CARBIDOPA\LEVODOPA
     Dosage: PUMP TYPE : NIGHT  PUMP,  EXTRA DOSAGE : 2.20 ML, NIGHT CONTINUOUS DOSAGE : 3.7 MLL/HR,  THERAPY ...
     Route: 050
     Dates: start: 20240820, end: 20241015
  5. CARBIDOPA\LEVODOPA [Suspect]
     Active Substance: CARBIDOPA\LEVODOPA
     Dosage: PUMP TYPE : DAY PUMP, MORNING DOSAGE : 11.0 ML,  CONTINUOUS DOSAGE : 5.1 ML,/HR, EXTRA DOSAGE : 3...
     Route: 050
     Dates: start: 20241015, end: 20241202
  6. CARBIDOPA\LEVODOPA [Suspect]
     Active Substance: CARBIDOPA\LEVODOPA
     Dosage: PUMP TYPE : DAY PUMP, MORNING DOSAGE : 11.0 ML,  CONTINUOUS DOSAGE : 5.1 ML,/HR, EXTRA DOSAGE : 3...
     Route: 050
     Dates: start: 20241202

REACTIONS (13)
  - Knee operation [Recovered/Resolved]
  - On and off phenomenon [Not Recovered/Not Resolved]
  - Unevaluable event [Not Recovered/Not Resolved]
  - Freezing phenomenon [Not Recovered/Not Resolved]
  - Muscle rigidity [Not Recovered/Not Resolved]
  - Bradykinesia [Not Recovered/Not Resolved]
  - Gait disturbance [Not Recovered/Not Resolved]
  - Tremor [Not Recovered/Not Resolved]
  - Fatigue [Not Recovered/Not Resolved]
  - Dyskinesia [Not Recovered/Not Resolved]
  - Weight increased [Not Recovered/Not Resolved]
  - Sleep disorder [Not Recovered/Not Resolved]
  - Emotional disorder [Not Recovered/Not Resolved]
